FAERS Safety Report 9448594 (Version 2)
Quarter: 2013Q3

REPORT INFORMATION
  Report Type: Spontaneous
  Country: JP (occurrence: JP)
  Receive Date: 20130808
  Receipt Date: 20130903
  Transmission Date: 20140515
  Serious: Yes (Hospitalization)
  Sender: FDA-Public Use
  Company Number: JP-BAXTER-2013BAX031306

PATIENT
  Age: 48 Year
  Sex: Female

DRUGS (4)
  1. ENDOXAN 500MG [Suspect]
     Indication: BREAST CANCER
     Route: 041
     Dates: start: 20130313, end: 20130515
  2. EPIRUBICIN HYDROCHLORIDE [Suspect]
     Indication: BREAST CANCER
     Route: 041
     Dates: start: 20130313, end: 20130515
  3. GRANISETRON [Concomitant]
     Indication: BREAST CANCER
     Route: 041
     Dates: start: 20130313, end: 20130315
  4. DEXART [Concomitant]
     Indication: BREAST CANCER
     Route: 041
     Dates: start: 20130313, end: 20130315

REACTIONS (1)
  - Colitis ischaemic [Not Recovered/Not Resolved]
